FAERS Safety Report 4436463-5 (Version None)
Quarter: 2004Q3

REPORT INFORMATION
  Report Type: 
  Country: None (occurrence: None)
  Receive Date: 20040830
  Receipt Date: 20040519
  Transmission Date: 20050211
  Serious: No
  Sender: FDA-Public Use
  Company Number: US-BRISTOL-MYERS SQUIBB COMPANY-12591970

PATIENT
  Age: 52 Year
  Sex: Male
  Weight: 76 kg

DRUGS (12)
  1. ABILIFY [Suspect]
     Indication: TRAUMATIC BRAIN INJURY
     Route: 048
     Dates: start: 20040518, end: 20040518
  2. VITAMIN C [Concomitant]
  3. GLUCOPHAGE [Concomitant]
  4. VITAMIN E [Concomitant]
  5. CLARITIN [Concomitant]
  6. FOLIC ACID [Concomitant]
  7. PREVACID [Concomitant]
  8. VITAMIN B-12 [Concomitant]
  9. METRONIDAZOLE [Concomitant]
  10. LITHIUM [Concomitant]
  11. TRILEPTAL [Concomitant]
  12. PROZAC [Concomitant]

REACTIONS (1)
  - BREAST PAIN [None]
